FAERS Safety Report 22145394 (Version 1)
Quarter: 2023Q1

REPORT INFORMATION
  Report Type: Spontaneous
  Country: CA (occurrence: CA)
  Receive Date: 20230328
  Receipt Date: 20230328
  Transmission Date: 20230417
  Serious: Yes (Hospitalization, Other)
  Sender: FDA-Public Use
  Company Number: CA-002147023-NVSC2023CA064910

PATIENT

DRUGS (12)
  1. ARIPIPRAZOLE [Suspect]
     Active Substance: ARIPIPRAZOLE
     Indication: Schizophrenia
     Dosage: 300 MG
     Route: 065
  2. ARIPIPRAZOLE [Suspect]
     Active Substance: ARIPIPRAZOLE
     Indication: Schizoaffective disorder
     Dosage: 300 MG
     Route: 065
  3. ARIPIPRAZOLE [Suspect]
     Active Substance: ARIPIPRAZOLE
     Indication: Depression
     Dosage: 300 MG
     Route: 065
  4. QUETIAPINE FUMARATE [Suspect]
     Active Substance: QUETIAPINE FUMARATE
     Indication: Product used for unknown indication
     Dosage: 25 MG
     Route: 048
  5. QUETIAPINE FUMARATE [Suspect]
     Active Substance: QUETIAPINE FUMARATE
     Dosage: UNK
     Route: 048
  6. ABILIFY [Suspect]
     Active Substance: ARIPIPRAZOLE
     Indication: Schizophrenia
     Dosage: UNK
     Route: 065
  7. ABILIFY [Suspect]
     Active Substance: ARIPIPRAZOLE
     Indication: Depression
     Dosage: UNK
     Route: 065
  8. ABILIFY [Suspect]
     Active Substance: ARIPIPRAZOLE
     Dosage: UNK
     Route: 065
  9. LAMICTAL [Suspect]
     Active Substance: LAMOTRIGINE
     Indication: Product used for unknown indication
     Dosage: 200 MG
     Route: 065
  10. LAMOTRIGINE [Suspect]
     Active Substance: LAMOTRIGINE
     Indication: Product used for unknown indication
     Dosage: 200 MG
     Route: 065
  11. WELLBUTRIN [Suspect]
     Active Substance: BUPROPION HYDROCHLORIDE
     Indication: Depression
     Dosage: 150 MG (EXTENDED RELEASE)
     Route: 065
  12. SERTRALINE HYDROCHLORIDE [Concomitant]
     Active Substance: SERTRALINE HYDROCHLORIDE
     Indication: Product used for unknown indication
     Dosage: UNK
     Route: 065

REACTIONS (7)
  - Headache [Not Recovered/Not Resolved]
  - Vertigo [Not Recovered/Not Resolved]
  - Anxiety [Not Recovered/Not Resolved]
  - Nausea [Not Recovered/Not Resolved]
  - Dizziness [Not Recovered/Not Resolved]
  - Infarction [Not Recovered/Not Resolved]
  - Product use in unapproved indication [Not Recovered/Not Resolved]
